FAERS Safety Report 7913642-3 (Version None)
Quarter: 2011Q4

REPORT INFORMATION
  Report Type: 
  Country: None (occurrence: None)
  Receive Date: 20111115
  Receipt Date: 20111109
  Transmission Date: 20120403
  Serious: No
  Sender: FDA-Public Use
  Company Number: US-PFIZER INC-2011275807

PATIENT

DRUGS (1)
  1. NICOTROL [Suspect]
     Dosage: UNK

REACTIONS (4)
  - SNEEZING [None]
  - BURNING SENSATION [None]
  - INCREASED UPPER AIRWAY SECRETION [None]
  - PAIN [None]
